FAERS Safety Report 4948000-7 (Version None)
Quarter: 2006Q1

REPORT INFORMATION
  Report Type: 
  Country: None (occurrence: None)
  Receive Date: 20060320
  Receipt Date: 20060310
  Transmission Date: 20060701
  Serious: Yes (Hospitalization)
  Sender: FDA-Public Use
  Company Number: US-AVENTIS-200612337US

PATIENT
  Sex: Female
  Weight: 91 kg

DRUGS (9)
  1. LANTUS [Suspect]
     Indication: DIABETES MELLITUS NON-INSULIN-DEPENDENT
     Dosage: DOSE UNIT: UNITS
  2. ACTOS [Concomitant]
  3. NIASPAN [Concomitant]
  4. OMEPRAZOLE [Concomitant]
  5. BENAZEPRIL HCL [Concomitant]
     Dosage: DOSE: UNK
  6. DIOVAN HCT [Concomitant]
     Dosage: DOSE: 80MG/12.5MG
  7. LEVOTHYROXINE SODIUM [Concomitant]
  8. PAROXETINE HCL [Concomitant]
  9. HUMALOG [Concomitant]
     Dosage: DOSE: VARIES

REACTIONS (4)
  - DEHYDRATION [None]
  - HYPOGLYCAEMIA [None]
  - LOSS OF CONSCIOUSNESS [None]
  - SOMNOLENCE [None]
